FAERS Safety Report 6257889-3 (Version None)
Quarter: 2009Q3

REPORT INFORMATION
  Report Type: 
  Country: None (occurrence: None)
  Receive Date: 20090702
  Receipt Date: 20090622
  Transmission Date: 20100115
  Serious: No
  Sender: FDA-Public Use
  Company Number: 20096979

PATIENT
  Age: 37 Year
  Sex: Female

DRUGS (5)
  1. BACLOFEN [Suspect]
     Indication: MUSCLE SPASTICITY
     Dosage: 40 - 60 MCG, DAILY, INTRATHECAL - SE
     Dates: start: 20080507
  2. DANTROLENE SODIUM [Concomitant]
  3. PHENOBARBITAL [Concomitant]
  4. CIMETIDINE [Concomitant]
  5. BROMHEXINE [Concomitant]

REACTIONS (5)
  - CONDITION AGGRAVATED [None]
  - ILEUS PARALYTIC [None]
  - INTESTINAL OBSTRUCTION [None]
  - MUSCLE SPASTICITY [None]
  - URINARY RETENTION [None]
